FAERS Safety Report 9107278 (Version 1)
Quarter: 2013Q1

REPORT INFORMATION
  Report Type: Report from Study
  Country: CA (occurrence: CA)
  Receive Date: 20130221
  Receipt Date: 20130221
  Transmission Date: 20140127
  Serious: Yes (Hospitalization)
  Sender: FDA-Public Use
  Company Number: CA-JNJFOC-20130207993

PATIENT
  Age: 34 Year
  Sex: Female
  Weight: 49.3 kg

DRUGS (6)
  1. REMICADE [Suspect]
     Indication: CROHN^S DISEASE
     Route: 042
     Dates: start: 2011
  2. CALCIUM CARBONATE [Concomitant]
     Route: 065
  3. PREDNISONE [Concomitant]
     Route: 065
  4. CIPRO [Concomitant]
     Route: 065
  5. FLAGYL [Concomitant]
     Route: 065
  6. SULFATRIM DS [Concomitant]
     Route: 065

REACTIONS (1)
  - Intestinal stenosis [Recovering/Resolving]
